FAERS Safety Report 17376563 (Version 1)
Quarter: 2020Q1

REPORT INFORMATION
  Report Type: Spontaneous
  Country: US (occurrence: US)
  Receive Date: 20200205
  Receipt Date: 20200205
  Transmission Date: 20200409
  Serious: No
  Sender: FDA-Public Use
  Company Number: None

PATIENT
  Age: 57 Year
  Sex: Male
  Weight: 94.3 kg

DRUGS (1)
  1. HEPARIN [Suspect]
     Active Substance: HEPARIN SODIUM
     Route: 040
     Dates: start: 20200131, end: 20200131

REACTIONS (2)
  - Coagulation time [None]
  - Drug ineffective [None]

NARRATIVE: CASE EVENT DATE: 20200131
